FAERS Safety Report 7425845-5 (Version None)
Quarter: 2011Q2

REPORT INFORMATION
  Report Type: 
  Country: None (occurrence: None)
  Receive Date: 20110420
  Receipt Date: 20110215
  Transmission Date: 20111010
  Serious: No
  Sender: FDA-Public Use
  Company Number: US-MYLANLABS-2011S1003127

PATIENT
  Age: 65 Year
  Sex: Female

DRUGS (6)
  1. LEVOTHYROXINE SODIUM [Concomitant]
  2. LIOTHYRONINE SODIUM [Suspect]
     Route: 048
     Dates: start: 20100201, end: 20101101
  3. CALCIUM [Concomitant]
  4. ESTRADIOL [Concomitant]
  5. LIOTHYRONINE SODIUM [Suspect]
     Indication: HYPOTHYROIDISM
     Route: 048
     Dates: start: 20090701, end: 20100201
  6. PROGESTERONE [Concomitant]

REACTIONS (13)
  - MIGRAINE [None]
  - DYSLEXIA [None]
  - MYALGIA [None]
  - DEPRESSION [None]
  - ARTHRALGIA [None]
  - ANXIETY [None]
  - WEIGHT INCREASED [None]
  - INSOMNIA [None]
  - VISION BLURRED [None]
  - DIZZINESS [None]
  - DISTURBANCE IN ATTENTION [None]
  - PALPITATIONS [None]
  - OEDEMA [None]
